FAERS Safety Report 6818598-2 (Version None)
Quarter: 2010Q3

REPORT INFORMATION
  Report Type: 
  Country: None (occurrence: None)
  Receive Date: 20100706
  Receipt Date: 20090130
  Transmission Date: 20110219
  Serious: No
  Sender: FDA-Public Use
  Company Number: US-PFIZER INC-2008101528

PATIENT
  Age: 75 Year
  Sex: Male

DRUGS (1)
  1. ZITHROMAX [Suspect]
     Dosage: UNK
     Dates: start: 20081101

REACTIONS (1)
  - INCREASED INSULIN REQUIREMENT [None]
